FAERS Safety Report 5067394-8 (Version None)
Quarter: 2006Q3

REPORT INFORMATION
  Report Type: 
  Country: None (occurrence: None)
  Receive Date: 20060727
  Receipt Date: 20060713
  Transmission Date: 20061208
  Serious: Yes (Congenital Anomaly)
  Sender: FDA-Public Use
  Company Number: 2006RR-02984

PATIENT
  Sex: Male
  Weight: 4.3 kg

DRUGS (3)
  1. AMOXICILLIN [Suspect]
     Indication: HELICOBACTER INFECTION
     Dosage: TRANSPLACENTAL
     Route: 064
     Dates: start: 20050310, end: 20050317
  2. CLARITHROMYCIN [Suspect]
     Indication: HELICOBACTER INFECTION
     Dosage: TRANSPLACENTAL
     Route: 064
     Dates: start: 20050310, end: 20050317
  3. LANSOPRAZOLE [Suspect]
     Indication: HELICOBACTER INFECTION
     Dosage: TRANSPLACENTAL
     Route: 064
     Dates: start: 20050310, end: 20050317

REACTIONS (2)
  - ANKYLOGLOSSIA CONGENITAL [None]
  - DRUG EXPOSURE DURING PREGNANCY [None]
